FAERS Safety Report 7416520-1 (Version None)
Quarter: 2011Q2

REPORT INFORMATION
  Report Type: 
  Country: None (occurrence: None)
  Receive Date: 20110414
  Receipt Date: 20110405
  Transmission Date: 20111010
  Serious: Yes (Hospitalization)
  Sender: FDA-Public Use
  Company Number: US-MPIJNJ-2011-01423

PATIENT
  Age: 78 Year
  Sex: Male

DRUGS (6)
  1. FLUCONAZOLE [Concomitant]
     Indication: PROPHYLAXIS
  2. CYCLOPHOSPHAMIDE [Suspect]
     Indication: MULTIPLE MYELOMA
  3. ACYCLOVIR [Concomitant]
     Indication: PROPHYLAXIS
  4. VELCADE [Suspect]
     Indication: MULTIPLE MYELOMA
  5. DEXAMETHASONE [Suspect]
     Indication: MULTIPLE MYELOMA
  6. SULFAMETHOXAZOLE AND TRIMETHOPRIM [Concomitant]
     Indication: PROPHYLAXIS

REACTIONS (4)
  - CELLULITIS [None]
  - SEPSIS [None]
  - CUTANEOUS AMYLOIDOSIS [None]
  - SEPTIC SHOCK [None]
